FAERS Safety Report 8271467-6 (Version None)
Quarter: 2012Q2

REPORT INFORMATION
  Report Type: 
  Country: None (occurrence: None)
  Receive Date: 20120410
  Receipt Date: 20120404
  Transmission Date: 20120825
  Serious: Yes (Other)
  Sender: FDA-Public Use
  Company Number: FR-BAYER-2012-033631

PATIENT
  Age: 78 Year
  Sex: Male

DRUGS (1)
  1. NEXAVAR [Suspect]
     Indication: THYROID CANCER
     Dosage: 800 MG, UNK

REACTIONS (3)
  - PULMONARY EMBOLISM [None]
  - VISION BLURRED [None]
  - RETINAL VEIN THROMBOSIS [None]
